FAERS Safety Report 16082116 (Version 2)
Quarter: 2019Q1

REPORT INFORMATION
  Report Type: Spontaneous
  Country: US (occurrence: US)
  Receive Date: 20190317
  Receipt Date: 20190318
  Transmission Date: 20190418
  Serious: Yes (Hospitalization)
  Sender: FDA-Public Use
  Company Number: US-LP PHARMA-2019PRN00353

PATIENT
  Sex: Female
  Weight: 99.77 kg

DRUGS (1)
  1. CLONIDINE HYDROCHLORIDE. [Suspect]
     Active Substance: CLONIDINE HYDROCHLORIDE

REACTIONS (1)
  - Reaction to excipient [Unknown]

NARRATIVE: CASE EVENT DATE: 2009
